FAERS Safety Report 7903422-7 (Version None)
Quarter: 2011Q4

REPORT INFORMATION
  Report Type: 
  Country: None (occurrence: None)
  Receive Date: 20111109
  Receipt Date: 20111107
  Transmission Date: 20120403
  Serious: Yes (Death, Life-Threatening)
  Sender: FDA-Public Use
  Company Number: JP-BAYER-201011020BYL

PATIENT
  Age: 68 Year
  Sex: Male
  Weight: 73 kg

DRUGS (13)
  1. ALLOID G [Concomitant]
     Dosage: BEFORE NEXAVAR ADMINISTRATION
     Route: 048
  2. ASPIRIN [Concomitant]
     Dosage: BEFORE NEXAVAR ADMINISTRATION
     Route: 048
  3. PROMAC [POLAPREZINC] [Concomitant]
     Dosage: BEFORE NEXAVAR ADMINISTRATION
     Route: 048
  4. NEXAVAR [Suspect]
     Indication: HEPATIC NEOPLASM MALIGNANT
     Dosage: 800 MG, QD
     Route: 048
     Dates: start: 20090701, end: 20091201
  5. ISOSORBIDE MONONITRATE [Concomitant]
     Dosage: BEFORE NEXAVAR ADMINISTRATION
     Route: 048
  6. ASTOMIN [Concomitant]
     Dosage: BEFORE NEXAVAR ADMINISTRATION
     Route: 048
  7. MIYA BM [Concomitant]
     Dosage: BEFORE NEXAVAR ADMINISTRATION
     Route: 048
  8. RABEPRAZOLE SODIUM [Concomitant]
     Dosage: BEFORE NEXAVAR ADMINISTRATION
     Route: 048
  9. LIVALO [Concomitant]
     Dosage: BEFORE NEXAVAR ADMINISTRATION
     Route: 048
  10. URSO 250 [Concomitant]
     Dosage: BEFORE NEXAVAR ADMINISTRATION
     Route: 048
  11. BERIZYM [ENZYMES NOS] [Concomitant]
     Dosage: BEFORE NEXAVAR ADMINISTRATION
     Route: 048
  12. ZOLPIDEM [Concomitant]
     Dosage: BEFORE NEXAVAR ADMINISTRATION
     Route: 048
  13. MUCOSTA [Concomitant]
     Dosage: BEFORE NEXAVAR ADMINISTRATION
     Route: 048

REACTIONS (4)
  - STOMATITIS [None]
  - HEPATIC NEOPLASM MALIGNANT [None]
  - DECREASED APPETITE [None]
  - DIARRHOEA [None]
